FAERS Safety Report 8601209-3 (Version None)
Quarter: 2012Q3

REPORT INFORMATION
  Report Type: 
  Country: None (occurrence: None)
  Receive Date: 20120817
  Receipt Date: 20120810
  Transmission Date: 20120928
  Serious: Yes (Hospitalization)
  Sender: FDA-Public Use
  Company Number: PHHY2012JP069447

PATIENT
  Age: 64 Year
  Sex: Female

DRUGS (5)
  1. BEVACIZUMAB [Suspect]
     Dosage: 280 MG, UNK
     Route: 042
  2. FLUOROURACIL [Suspect]
     Dosage: 600 MG, UNK
     Route: 042
  3. FLUOROURACIL [Suspect]
     Dosage: 3600 MG, UNK
  4. OXALIPLATIN [Suspect]
     Dosage: 130 MG, UNK
     Route: 041
  5. LEUCOVORIN CALCIUM [Suspect]
     Dosage: 300 MG, UNK
     Route: 041

REACTIONS (6)
  - ILEUS [None]
  - ABDOMINAL DISTENSION [None]
  - TENDERNESS [None]
  - INTESTINAL STENOSIS [None]
  - BOWEL MOVEMENT IRREGULARITY [None]
  - INFLAMMATION [None]
